FAERS Safety Report 9183714 (Version 1)
Quarter: 2012Q4

REPORT INFORMATION
  Report Type: 
  Country: US (occurrence: US)
  Receive Date: 20121101
  Receipt Date: 20121101
  Transmission Date: 20130627
  Serious: Yes (Death, Other)
  Sender: FDA-Public Use
  Company Number: US-PFIZER INC-2012268624

PATIENT
  Age: 77 Year
  Sex: Female
  Weight: 47.62 kg

DRUGS (2)
  1. REVATIO [Suspect]
     Indication: PULMONARY HYPERTENSION
     Dosage: UNK
     Dates: start: 2012
  2. COREG [Suspect]
     Dosage: UNK

REACTIONS (4)
  - Cardiac disorder [Fatal]
  - Blood potassium abnormal [Unknown]
  - Blood electrolytes abnormal [Unknown]
  - Drug level changed [Unknown]
